FAERS Safety Report 7759639-8 (Version None)
Quarter: 2011Q3

REPORT INFORMATION
  Report Type: 
  Country: None (occurrence: None)
  Receive Date: 20110919
  Receipt Date: 20110908
  Transmission Date: 20111222
  Serious: Yes (Other)
  Sender: FDA-Public Use
  Company Number: HU-ASTRAZENECA-2011SE54709

PATIENT
  Age: 48 Year
  Sex: Male

DRUGS (3)
  1. CLONAZEPAM [Concomitant]
     Route: 048
  2. QUETIAPINE [Suspect]
     Indication: SCHIZOPHRENIA
     Route: 048
  3. VALPROATE SODIUM [Concomitant]
     Route: 048

REACTIONS (3)
  - DYSTHYMIC DISORDER [None]
  - SUICIDAL IDEATION [None]
  - DYSPHORIA [None]
